FAERS Safety Report 23662156 (Version 3)
Quarter: 2024Q2

REPORT INFORMATION
  Report Type: Report from Study
  Country: IL (occurrence: IL)
  Receive Date: 20240322
  Receipt Date: 20240509
  Transmission Date: 20240716
  Serious: Yes (Other)
  Sender: FDA-Public Use
  Company Number: IL-Merck Healthcare KGaA-2024014067

PATIENT
  Sex: Female

DRUGS (1)
  1. EUTHYROX [Suspect]
     Active Substance: LEVOTHYROXINE SODIUM
     Indication: Product used for unknown indication
     Dosage: SOMETIMES SHE WAS TAKING 50 MICROGRAM AND SOMETIMES 100 MICROGRAM

REACTIONS (9)
  - Coeliac disease [Unknown]
  - Tongue disorder [Unknown]
  - Dizziness [Unknown]
  - Fatigue [Unknown]
  - Nasopharyngitis [Unknown]
  - Sensory disturbance [Unknown]
  - Balance disorder [Unknown]
  - Malaise [Unknown]
  - Drug ineffective [Unknown]
